FAERS Safety Report 23499586 (Version 1)
Quarter: 2024Q1

REPORT INFORMATION
  Report Type: Other
  Country: NZ (occurrence: NZ)
  Receive Date: 20240208
  Receipt Date: 20240208
  Transmission Date: 20240410
  Serious: Yes (Other)
  Sender: FDA-Public Use
  Company Number: NZ-TASMAN PHARMA, INC.-2024TSM00051

PATIENT
  Age: 86 Year
  Sex: Female

DRUGS (5)
  1. CLOZAPINE [Suspect]
     Active Substance: CLOZAPINE
     Dosage: UNK
  2. VENLAFAXINE [Concomitant]
     Active Substance: VENLAFAXINE HYDROCHLORIDE
  3. MIRTAZAPINE [Concomitant]
     Active Substance: MIRTAZAPINE
  4. BENSERAZIDE HYDROCHLORIDE\LEVODOPA [Concomitant]
     Active Substance: BENSERAZIDE HYDROCHLORIDE\LEVODOPA
  5. RIVASTIGMINE [Concomitant]
     Active Substance: RIVASTIGMINE

REACTIONS (2)
  - Cardiac failure [Unknown]
  - Pneumonia [Unknown]
